FAERS Safety Report 6934793-6 (Version None)
Quarter: 2010Q3

REPORT INFORMATION
  Report Type: 
  Country: None (occurrence: None)
  Receive Date: 20100820
  Receipt Date: 20100805
  Transmission Date: 20110219
  Serious: Yes (Hospitalization)
  Sender: FDA-Public Use
  Company Number: PHHY2010JP51922

PATIENT
  Age: 62 Year
  Sex: Female

DRUGS (3)
  1. DIOVAN [Suspect]
     Indication: HYPERTENSION
     Dosage: 40 MG, QD
     Route: 048
     Dates: start: 20100123, end: 20100622
  2. NORVASC [Concomitant]
     Dosage: 5 MG
     Route: 048
     Dates: start: 20000501, end: 20100620
  3. MERCAZOLE [Concomitant]
     Dosage: 30 MG
     Route: 048
     Dates: start: 20100601

REACTIONS (1)
  - HEPATIC FUNCTION ABNORMAL [None]
